FAERS Safety Report 25774766 (Version 3)
Quarter: 2025Q4

REPORT INFORMATION
  Report Type: Spontaneous
  Country: US (occurrence: US)
  Receive Date: 20250908
  Receipt Date: 20251021
  Transmission Date: 20260118
  Serious: Yes (Hospitalization)
  Sender: CSL BEHRING
  Company Number: US-BEH-2025218069

PATIENT
  Age: 92 Year
  Sex: Female
  Weight: 50.794 kg

DRUGS (2)
  1. HIZENTRA [Suspect]
     Active Substance: HUMAN IMMUNOGLOBULIN G
     Indication: Immunodeficiency common variable
     Dosage: 8 G, QOW
     Route: 058
     Dates: start: 20241209
  2. HIZENTRA [Suspect]
     Active Substance: HUMAN IMMUNOGLOBULIN G
     Dosage: 8 G, (40ML) QOW
     Route: 058
     Dates: start: 20250717, end: 20250717

REACTIONS (5)
  - Lichen sclerosus [Unknown]
  - Blood pressure increased [Recovered/Resolved]
  - Urinary tract infection [Unknown]
  - Skin infection [Unknown]
  - Pain [Unknown]

NARRATIVE: CASE EVENT DATE: 20250902
